FAERS Safety Report 9119383 (Version 1)
Quarter: 2013Q1

REPORT INFORMATION
  Report Type: Spontaneous
  Country: US (occurrence: None)
  Receive Date: 20130222
  Receipt Date: 20130222
  Transmission Date: 20140127
  Serious: Yes (Life-Threatening, Other)
  Sender: FDA-Public Use
  Company Number: None

PATIENT
  Age: 41 Year
  Sex: Female

DRUGS (2)
  1. BUPROPION 150MG XL ? GENERIC [Suspect]
     Indication: MAJOR DEPRESSION
     Dosage: 150MG  QD  PO?4 - 6 WKS.
     Route: 048
  2. ZOLOFT [Concomitant]

REACTIONS (3)
  - Product substitution issue [None]
  - Depression [None]
  - Suicidal ideation [None]
